FAERS Safety Report 9073510 (Version 1)
Quarter: 2013Q1

REPORT INFORMATION
  Report Type: Spontaneous
  Country: GB (occurrence: GB)
  Receive Date: 20130216
  Receipt Date: 20130216
  Transmission Date: 20140127
  Serious: Yes (Hospitalization)
  Sender: FDA-Public Use
  Company Number: GB-UCBSA-078072

PATIENT
  Age: 25 Year
  Sex: Female

DRUGS (7)
  1. KEPPRA [Suspect]
     Indication: EPILEPSY
  2. TROBALT [Suspect]
     Indication: EPILEPSY
  3. CARBAMAZEPINE [Concomitant]
  4. CLOBAZAM [Concomitant]
  5. DIAZEPAM [Concomitant]
  6. PHENOBARBITAL [Concomitant]
  7. VALPROATE [Concomitant]

REACTIONS (1)
  - Convulsion [Unknown]
